FAERS Safety Report 9093815 (Version 1)
Quarter: 2013Q1

REPORT INFORMATION
  Report Type: Report from Study
  Country: US (occurrence: US)
  Receive Date: 20130131
  Receipt Date: 20130131
  Transmission Date: 20140127
  Serious: No
  Sender: FDA-Public Use
  Company Number: US-ABBOTT-12P-163-0979879-00

PATIENT
  Age: 53 Year
  Sex: Female

DRUGS (13)
  1. HUMIRA [Suspect]
     Indication: RHEUMATOID ARTHRITIS
     Dates: start: 20120802
  2. PREDNISONE [Concomitant]
     Indication: RHEUMATOID ARTHRITIS
     Dosage: 5MG IN THE MORNING AND 10MG IN THE EVENING DAILY
  3. PREDNISONE [Concomitant]
     Dosage: 3 MG AT NIGHT
  4. PREDNISONE [Concomitant]
     Dosage: 2 MG AT NIGHT DAILY
  5. METHOTREXATE [Concomitant]
     Indication: RHEUMATOID ARTHRITIS
     Dosage: 2.5MG/8 TABLETS EVERY WEEK
  6. SULFASALAZINE [Concomitant]
     Indication: IMMUNE SYSTEM DISORDER
     Dosage: 2 TABLETS IN THE MORNING AND 2 TABLETS IN THE EVENING
     Route: 048
  7. SULFASALAZINE [Concomitant]
     Dosage: 1 TABLET IN AM AND 1 TABLET IN PM
     Route: 048
  8. METFORMIN [Concomitant]
     Indication: DIABETES MELLITUS
     Dosage: 1 TABLET IN THE EVENING
     Route: 048
  9. AMLODIPINE [Concomitant]
     Indication: HYPERTENSION
     Dosage: 10MG IN THE MORNING
  10. FOLIC ACID [Concomitant]
     Indication: VITAMIN SUPPLEMENTATION
     Route: 048
  11. LISINOPRIL [Concomitant]
     Indication: HYPERTENSION
     Dosage: 10MG DAILY IN THE EVENING
     Route: 048
  12. FISH OIL [Concomitant]
     Indication: ASTHENIA
     Dosage: 500MG DAILY
     Route: 048
  13. JANUMET [Concomitant]
     Dates: start: 20120915

REACTIONS (11)
  - Incorrect dose administered [Recovered/Resolved]
  - Injection site pain [Recovered/Resolved]
  - Vitamin B12 decreased [Recovered/Resolved]
  - Blood cholesterol [Recovered/Resolved]
  - Therapeutic response unexpected [Recovered/Resolved]
  - Anxiety [Recovering/Resolving]
  - Hyperhidrosis [Recovering/Resolving]
  - Injection site pain [Recovering/Resolving]
  - Rheumatoid arthritis [Recovering/Resolving]
  - Injection site erythema [Recovering/Resolving]
  - Injection site pruritus [Recovering/Resolving]
